FAERS Safety Report 7764578-2 (Version None)
Quarter: 2011Q3

REPORT INFORMATION
  Report Type: 
  Country: None (occurrence: None)
  Receive Date: 20110921
  Receipt Date: 20110915
  Transmission Date: 20111222
  Serious: Yes (Hospitalization, Other)
  Sender: FDA-Public Use
  Company Number: US-PFIZER INC-2011219041

PATIENT
  Age: 15 Year
  Sex: Female

DRUGS (1)
  1. ERAXIS [Suspect]
     Indication: FUNGAL INFECTION
     Dosage: 200 MG, UNK
     Dates: start: 20110915

REACTIONS (2)
  - PYREXIA [None]
  - DYSPNOEA [None]
